FAERS Safety Report 8177038-4 (Version None)
Quarter: 2012Q1

REPORT INFORMATION
  Report Type: 
  Country: None (occurrence: None)
  Receive Date: 20120301
  Receipt Date: 20100806
  Transmission Date: 20120608
  Serious: Yes (Hospitalization, Disabling)
  Sender: FDA-Public Use
  Company Number: FR-B.I. PHARMACEUTICALS,INC./RIDGEFIELD-2012-EU-01210GL

PATIENT
  Sex: Female

DRUGS (15)
  1. FLUINDIONE [Concomitant]
     Dates: end: 20100518
  2. CIPROFLOXACIN [Concomitant]
     Dates: start: 20100508, end: 20100511
  3. TRAMADOL HCL [Concomitant]
     Dates: start: 20100511, end: 20100513
  4. GENTAMICIN SULFATE [Suspect]
     Indication: LISTERIA ENCEPHALITIS
     Dosage: 420 MG
     Route: 048
     Dates: start: 20100511, end: 20100513
  5. FUROSEMIDE [Concomitant]
     Dates: end: 20100518
  6. DIGOXIN [Concomitant]
  7. BROMAZEPAM [Concomitant]
     Dates: start: 20100513
  8. POTASSIUM CHLORIDE [Suspect]
     Indication: PRODUCT USED FOR UNKNOWN INDICATION
     Route: 048
     Dates: end: 20100518
  9. TELMISARTAN [Suspect]
     Indication: PRODUCT USED FOR UNKNOWN INDICATION
     Route: 048
     Dates: end: 20100518
  10. AMOXICILLIN [Suspect]
     Indication: LISTERIA ENCEPHALITIS
     Dosage: 8 G
     Route: 048
     Dates: start: 20100511, end: 20100521
  11. CEFTRIAXONE SODIUM [Concomitant]
     Dates: start: 20100511, end: 20100511
  12. ALLOPURINOL [Suspect]
     Indication: PRODUCT USED FOR UNKNOWN INDICATION
     Route: 048
     Dates: end: 20100518
  13. COLCHICINE [Suspect]
     Indication: GOUT
     Route: 048
     Dates: end: 20100518
  14. ATENOLOL [Concomitant]
     Dates: end: 20100518
  15. SPIRONOLACTONE [Suspect]
     Indication: PRODUCT USED FOR UNKNOWN INDICATION
     Route: 048
     Dates: end: 20100518

REACTIONS (6)
  - PROTEINURIA [None]
  - EOSINOPHIL COUNT INCREASED [None]
  - ERYTHEMA MULTIFORME [None]
  - RENAL FAILURE ACUTE [None]
  - OVERDOSE [None]
  - CONDITION AGGRAVATED [None]
